APPROVED DRUG PRODUCT: GRANISETRON HYDROCHLORIDE
Active Ingredient: GRANISETRON HYDROCHLORIDE
Strength: EQ 0.1MG BASE/ML (EQ 0.1MG BASE/ML)
Dosage Form/Route: INJECTABLE;INJECTION
Application: A078262 | Product #001 | TE Code: AP
Applicant: AMNEAL EU LTD
Approved: Dec 31, 2007 | RLD: No | RS: No | Type: RX